FAERS Safety Report 9460808 (Version 1)
Quarter: 2013Q3

REPORT INFORMATION
  Report Type: Spontaneous
  Country: US (occurrence: US)
  Receive Date: 20130815
  Receipt Date: 20130815
  Transmission Date: 20140515
  Serious: No
  Sender: FDA-Public Use
  Company Number: US-009507513-1308USA006047

PATIENT
  Sex: 0

DRUGS (1)
  1. VYTORIN [Suspect]
     Dosage: 10/20 MG IN THE MORNING
     Route: 048

REACTIONS (2)
  - Abdominal pain upper [Unknown]
  - Wrong technique in drug usage process [Unknown]
